FAERS Safety Report 4459147-6 (Version None)
Quarter: 2004Q3

REPORT INFORMATION
  Report Type: 
  Country: None (occurrence: None)
  Receive Date: 20040927
  Receipt Date: 20040917
  Transmission Date: 20050211
  Serious: Yes (Other)
  Sender: FDA-Public Use
  Company Number: PHEH2004US10030

PATIENT
  Age: 79 Year
  Sex: Female

DRUGS (3)
  1. SANDOSTATIN LAR [Suspect]
     Indication: MALIGNANT NEOPLASM OF ISLETS OF LANGERHANS
     Dosage: UNK, ONCE/SINGLE
     Dates: start: 20000101, end: 20000101
  2. SYNTHROID [Concomitant]
  3. MULTI-VITAMINS [Concomitant]

REACTIONS (6)
  - BALANCE DISORDER [None]
  - BLINDNESS UNILATERAL [None]
  - CEREBRAL INFARCTION [None]
  - CHEST PAIN [None]
  - HYPOACUSIS [None]
  - PAIN IN EXTREMITY [None]
